FAERS Safety Report 7000236-X (Version None)
Quarter: 2010Q3

REPORT INFORMATION
  Report Type: 
  Country: None (occurrence: None)
  Receive Date: 20100920
  Receipt Date: 20071008
  Transmission Date: 20110219
  Serious: Yes (Other)
  Sender: FDA-Public Use
  Company Number: US-ASTRAZENECA-2006UW22060

PATIENT
  Age: 17867 Day
  Sex: Female

DRUGS (9)
  1. SEROQUEL [Suspect]
     Dosage: 25-50 MG
     Route: 048
     Dates: start: 20041022
  2. THEOPHYLLINE [Concomitant]
     Dates: start: 20040503, end: 20051118
  3. LEXAPRO [Concomitant]
     Dates: start: 20051118
  4. ALBUTEROL [Concomitant]
     Indication: ASTHMA
     Dosage: 90 MCG, 0.83 MG/ML, TWO PUFFS QID PRN
     Dates: start: 20040503
  5. ALBUTEROL [Concomitant]
     Indication: WHEEZING
     Dosage: 90 MCG, 0.83 MG/ML, TWO PUFFS QID PRN
     Dates: start: 20040503
  6. ALBUTEROL [Concomitant]
     Indication: DYSPNOEA
     Dosage: 90 MCG, 0.83 MG/ML, TWO PUFFS QID PRN
     Dates: start: 20040503
  7. FLOVENT [Concomitant]
     Indication: ASTHMA
     Dosage: ONE PUFF BID
     Dates: start: 20040503
  8. SPIRIVA [Concomitant]
     Indication: CHRONIC OBSTRUCTIVE PULMONARY DISEASE
     Dosage: 18 MCG, ONE PUFF DAILY
     Dates: start: 20041013
  9. ADVAIR DISKUS 100/50 [Concomitant]
     Indication: CHRONIC OBSTRUCTIVE PULMONARY DISEASE
     Dosage: 100/50
     Dates: start: 20040820

REACTIONS (1)
  - PANCREATITIS [None]
